FAERS Safety Report 4687815-X (Version None)
Quarter: 2005Q2

REPORT INFORMATION
  Report Type: 
  Country: None (occurrence: None)
  Receive Date: 20050610
  Receipt Date: 20050530
  Transmission Date: 20051028
  Serious: Yes (Death)
  Sender: FDA-Public Use
  Company Number: FR-JNJFOC-20050507180

PATIENT
  Age: 75 Year
  Sex: Female
  Weight: 55 kg

DRUGS (18)
  1. DURAGESIC-100 [Suspect]
     Indication: CANCER PAIN
     Route: 062
  2. TAXOTERE [Suspect]
     Indication: DRUG USE FOR UNKNOWN INDICATION
     Route: 042
  3. HERCEPTIN [Suspect]
     Indication: DRUG USE FOR UNKNOWN INDICATION
     Route: 042
  4. AZANTAC [Concomitant]
     Route: 065
  5. LASILIX [Concomitant]
     Route: 065
  6. POLARAMINE [Concomitant]
     Route: 065
  7. SOLU-MEDROL [Concomitant]
     Route: 065
  8. DUPHALAC [Concomitant]
     Route: 065
  9. STILNOX [Concomitant]
     Route: 065
  10. ATARAX [Concomitant]
     Route: 065
  11. ZOLOFT [Concomitant]
     Route: 065
  12. OMEPRAZOLE [Concomitant]
     Route: 065
  13. DIFFU-K [Concomitant]
     Route: 065
  14. DEBRIDAT [Concomitant]
     Route: 065
  15. GELOX [Concomitant]
     Route: 065
  16. GELOX [Concomitant]
     Route: 065
  17. GELOX [Concomitant]
     Route: 065
  18. CORTANCYL [Concomitant]
     Route: 065

REACTIONS (4)
  - ABDOMINAL PAIN [None]
  - CARDIAC ARREST [None]
  - DYSPNOEA [None]
  - TACHYCARDIA [None]
